FAERS Safety Report 4904450-6 (Version None)
Quarter: 2006Q1

REPORT INFORMATION
  Report Type: 
  Country: None (occurrence: None)
  Receive Date: 20060208
  Receipt Date: 20050907
  Transmission Date: 20060701
  Serious: Yes (Other)
  Sender: FDA-Public Use
  Company Number: US-GLAXOSMITHKLINE-A0573312A

PATIENT
  Age: 86 Year
  Sex: Female

DRUGS (2)
  1. PAXIL [Suspect]
     Indication: DEPRESSION
     Dosage: 10MG PER DAY
     Route: 048
     Dates: start: 20050701, end: 20050827
  2. LEVODOPA [Concomitant]

REACTIONS (11)
  - AGITATION [None]
  - ANOREXIA [None]
  - CONFUSIONAL STATE [None]
  - DISORIENTATION [None]
  - DIZZINESS [None]
  - DYSPHORIA [None]
  - HALLUCINATION [None]
  - INAPPROPRIATE AFFECT [None]
  - INSOMNIA [None]
  - IRRITABILITY [None]
  - PSYCHOTIC DISORDER [None]
